FAERS Safety Report 19308726 (Version 3)
Quarter: 2021Q2

REPORT INFORMATION
  Report Type: Spontaneous
  Country: JP (occurrence: JP)
  Receive Date: 20210525
  Receipt Date: 20210616
  Transmission Date: 20210717
  Serious: Yes (Other)
  Sender: FDA-Public Use
  Company Number: JP-GILEAD-2021-0532344

PATIENT
  Age: 58 Year
  Sex: Male
  Weight: 65 kg

DRUGS (7)
  1. HUMULIN R [Concomitant]
     Active Substance: INSULIN HUMAN
     Indication: GLUCOSE TOLERANCE IMPAIRED
     Dosage: UNK
     Route: 058
     Dates: start: 20210518
  2. LEVOFLOXACIN HEMIHYDRATE [Concomitant]
     Active Substance: LEVOFLOXACIN
     Indication: PNEUMONIA BACTERIAL
     Dosage: 500 MG
     Route: 048
     Dates: start: 20210517, end: 20210521
  3. SOLU?MEDROL [Suspect]
     Active Substance: METHYLPREDNISOLONE SODIUM SUCCINATE
     Indication: COVID-19
     Dosage: 500 MG, QD
     Route: 041
     Dates: start: 20210517, end: 20210519
  4. VEKLURY [Suspect]
     Active Substance: REMDESIVIR
     Indication: COVID-19
     Dosage: 200 MG, QD
     Route: 041
     Dates: start: 20210515, end: 20210515
  5. DECADRON [Concomitant]
     Active Substance: DEXAMETHASONE
     Indication: COVID-19
     Dosage: 6 MG, QD
     Route: 048
     Dates: start: 20210515, end: 20210522
  6. HEPARIN [Concomitant]
     Active Substance: HEPARIN SODIUM
     Indication: THROMBOSIS PROPHYLAXIS
     Dosage: 5000 UNITS, BID
     Route: 058
     Dates: start: 20210514, end: 20210520
  7. VEKLURY [Suspect]
     Active Substance: REMDESIVIR
     Dosage: 100 MG, QD
     Route: 041
     Dates: start: 20210516, end: 20210519

REACTIONS (1)
  - Renal infarct [Recovering/Resolving]

NARRATIVE: CASE EVENT DATE: 20210519
